FAERS Safety Report 10365023 (Version 1)
Quarter: 2014Q3

REPORT INFORMATION
  Report Type: Spontaneous
  Country: US (occurrence: None)
  Receive Date: 20140804
  Receipt Date: 20140804
  Transmission Date: 20150326
  Serious: Yes (Life-Threatening, Hospitalization, Disabling)
  Sender: FDA-Public Use
  Company Number: None

PATIENT
  Age: 39 Year
  Sex: Male
  Weight: 77.11 kg

DRUGS (1)
  1. TAMAZEPAM [Suspect]
     Active Substance: TEMAZEPAM
     Indication: INSOMNIA
     Dosage: BEGAN AT 15 MG ONCE DAILY TAKEN BY MOUTH
     Route: 048

REACTIONS (11)
  - Fatigue [None]
  - Phobia [None]
  - Derealisation [None]
  - Bedridden [None]
  - Anxiety [None]
  - Dizziness [None]
  - Head discomfort [None]
  - Cognitive disorder [None]
  - Confusional state [None]
  - Psychotic disorder [None]
  - Malaise [None]
